FAERS Safety Report 4653956-6 (Version None)
Quarter: 2005Q2

REPORT INFORMATION
  Report Type: 
  Country: None (occurrence: None)
  Receive Date: 20050504
  Receipt Date: 20050421
  Transmission Date: 20051028
  Serious: Yes (Hospitalization, Other)
  Sender: FDA-Public Use
  Company Number: 2005063847

PATIENT
  Sex: Female

DRUGS (4)
  1. FELDENE [Suspect]
     Indication: OSTEOARTHRITIS
     Dosage: TOPICAL
  2. BENZYDAMINE HYDROCHLORIDE (BENZYDAMINE HYDROCHLORIDE) [Concomitant]
  3. LEVOTHYROXINE SODIUM [Concomitant]
  4. ATENOLOL [Concomitant]

REACTIONS (3)
  - ARTHROPATHY [None]
  - RENAL DISORDER [None]
  - SKIN ULCER [None]
